FAERS Safety Report 10178941 (Version 1)
Quarter: 2014Q2

REPORT INFORMATION
  Report Type: Spontaneous
  Country: US (occurrence: US)
  Receive Date: 20140519
  Receipt Date: 20140519
  Transmission Date: 20141212
  Serious: No
  Sender: FDA-Public Use
  Company Number: US-BIOGENIDEC-2014BI040920

PATIENT
  Age: 46 Year
  Sex: Female

DRUGS (8)
  1. TECFIDERA [Suspect]
     Indication: MULTIPLE SCLEROSIS
     Dates: start: 20140408, end: 20140415
  2. TECFIDERA [Suspect]
     Indication: MULTIPLE SCLEROSIS
     Dates: start: 20140416, end: 20140417
  3. TECFIDERA [Suspect]
     Indication: MULTIPLE SCLEROSIS
     Route: 048
     Dates: start: 20140417
  4. ATIVAN [Concomitant]
  5. TRAMADOL [Concomitant]
  6. CYCLOSPORIN [Concomitant]
  7. PHENERGAN [Concomitant]
  8. FLEXERIL [Concomitant]

REACTIONS (22)
  - Weight decreased [Not Recovered/Not Resolved]
  - Sinusitis [Unknown]
  - Multiple allergies [Unknown]
  - Blindness [Unknown]
  - Middle insomnia [Unknown]
  - Muscle spasms [Not Recovered/Not Resolved]
  - Gastric disorder [Not Recovered/Not Resolved]
  - Paraesthesia [Unknown]
  - Fatigue [Unknown]
  - Panic attack [Unknown]
  - Psychomotor hyperactivity [Not Recovered/Not Resolved]
  - Hypoaesthesia [Not Recovered/Not Resolved]
  - Hunger [Not Recovered/Not Resolved]
  - Pyrexia [Unknown]
  - Intentional underdose [Not Recovered/Not Resolved]
  - Flushing [Unknown]
  - Abdominal pain upper [Not Recovered/Not Resolved]
  - Diarrhoea [Not Recovered/Not Resolved]
  - Vomiting [Unknown]
  - Dyspepsia [Unknown]
  - Pruritus [Not Recovered/Not Resolved]
  - Rash papular [Not Recovered/Not Resolved]
